FAERS Safety Report 5034524-3 (Version None)
Quarter: 2006Q2

REPORT INFORMATION
  Report Type: 
  Country: None (occurrence: None)
  Receive Date: 20060623
  Receipt Date: 20060623
  Transmission Date: 20061013
  Serious: Yes (Death)
  Sender: FDA-Public Use
  Company Number: None

PATIENT
  Sex: Female
  Weight: 57 kg

DRUGS (2)
  1. METFORMIN [Suspect]
     Indication: DIABETES MELLITUS
     Dosage: 1GM  TWICE A DAY PO
     Route: 048
     Dates: start: 20060119, end: 20060419
  2. METFORMIN [Suspect]
     Indication: HYPERGLYCAEMIA
     Dosage: 1GM  TWICE A DAY PO
     Route: 048
     Dates: start: 20060119, end: 20060419

REACTIONS (3)
  - EJECTION FRACTION DECREASED [None]
  - LACTIC ACIDOSIS [None]
  - MULTI-ORGAN FAILURE [None]
